FAERS Safety Report 16329328 (Version 1)
Quarter: 2019Q2

REPORT INFORMATION
  Report Type: Spontaneous
  Country: DE (occurrence: DE)
  Receive Date: 20190520
  Receipt Date: 20190520
  Transmission Date: 20190711
  Serious: No
  Sender: FDA-Public Use
  Company Number: DE-HORMOSAN PHARMA GMBH-2019-01658

PATIENT
  Sex: Female

DRUGS (1)
  1. QUETIAPIN-HORMOSAN 25 MG FILMTABLETTEN [Suspect]
     Active Substance: QUETIAPINE
     Indication: SLEEP DISORDER
     Dosage: 25 MILLIGRAM, QD
     Route: 048
     Dates: start: 2016

REACTIONS (3)
  - Product use in unapproved indication [Unknown]
  - Nightmare [Unknown]
  - Weight increased [Unknown]
